FAERS Safety Report 11107831 (Version 2)
Quarter: 2015Q2

REPORT INFORMATION
  Report Type: Report from Study
  Country: AR (occurrence: AR)
  Receive Date: 20150512
  Receipt Date: 20150527
  Transmission Date: 20150821
  Serious: Yes (Other)
  Sender: FDA-Public Use
  Company Number: PHHY2015AR045937

PATIENT
  Sex: Female

DRUGS (3)
  1. DOMPERDONE [Concomitant]
     Indication: PRODUCT USED FOR UNKNOWN INDICATION
     Route: 048
  2. EXFORGE [Suspect]
     Active Substance: AMLODIPINE BESYLATE\VALSARTAN
     Indication: BLOOD PRESSURE INCREASED
     Dosage: 1 DF, QD (5/80MG)
     Route: 048
  3. DIOVAN [Suspect]
     Active Substance: VALSARTAN
     Indication: BLOOD PRESSURE INCREASED
     Dosage: 80 MG, QD
     Route: 048
     Dates: end: 20150420

REACTIONS (4)
  - Blood pressure increased [Recovering/Resolving]
  - Keratitis [Not Recovered/Not Resolved]
  - Headache [Recovering/Resolving]
  - Abnormal sensation in eye [Unknown]
